FAERS Safety Report 10819856 (Version 1)
Quarter: 2015Q1

REPORT INFORMATION
  Report Type: Spontaneous
  Country: US (occurrence: US)
  Receive Date: 20150218
  Receipt Date: 20150218
  Transmission Date: 20150721
  Serious: Yes (Death, Hospitalization, Other)
  Sender: FDA-Public Use
  Company Number: US-GILEAD-2015-0137643

PATIENT
  Age: 60 Year
  Sex: Female

DRUGS (11)
  1. COLACE [Concomitant]
     Active Substance: DOCUSATE SODIUM
  2. ATOVAQUONE. [Concomitant]
     Active Substance: ATOVAQUONE
  3. PANTOPRAZOLE [Concomitant]
     Active Substance: PANTOPRAZOLE SODIUM
  4. FOLIC ACID. [Concomitant]
     Active Substance: FOLIC ACID
  5. LEVOTHYROXINE [Concomitant]
     Active Substance: LEVOTHYROXINE
  6. ENALAPRIL [Concomitant]
     Active Substance: ENALAPRIL
  7. MYCOPHENOLATE [Concomitant]
     Active Substance: MYCOPHENOLIC ACID
  8. LETAIRIS [Suspect]
     Active Substance: AMBRISENTAN
     Indication: PULMONARY ARTERIAL HYPERTENSION
     Dosage: 10 MG, QD
     Route: 065
     Dates: start: 20150121
  9. CALCIUM [Concomitant]
     Active Substance: CALCIUM
  10. TRAMADOL                           /00599202/ [Concomitant]
     Active Substance: TRAMADOL
  11. SILDENAFIL. [Concomitant]
     Active Substance: SILDENAFIL

REACTIONS (2)
  - Scleroderma [Fatal]
  - Pulmonary arterial hypertension [Fatal]
